FAERS Safety Report 8727220 (Version 2)
Quarter: 2012Q4

REPORT INFORMATION
  Report Type: 
  Country: JP (occurrence: JP)
  Receive Date: 20120816
  Receipt Date: 20120831
  Transmission Date: 20130627
  Serious: Yes (Hospitalization, Disabling)
  Sender: FDA-Public Use
  Company Number: JP-B.I. PHARMACEUTICALS,INC./RIDGEFIELD-2012-BP-17991NB

PATIENT
  Age: 63 Year
  Sex: Male
  Weight: 93.8 kg

DRUGS (9)
  1. PRAZAXA [Suspect]
     Indication: ATRIAL FIBRILLATION
     Dosage: 220 mg
     Route: 048
     Dates: start: 20120418, end: 20120423
  2. DIART [Concomitant]
     Dosage: 30 mg
     Route: 065
     Dates: start: 20071016
  3. SELARA [Concomitant]
     Dosage: 50 mg
     Route: 065
     Dates: start: 20071116
  4. LANSOPRAZOLE [Concomitant]
     Dosage: 15 mg
     Route: 065
     Dates: start: 20070730
  5. BEZATOL SR [Concomitant]
     Dosage: 200 mg
     Route: 065
     Dates: start: 20080307
  6. CRESTOR [Concomitant]
     Dosage: 5 mg
     Route: 065
     Dates: start: 20081226
  7. ALLOZYM [Concomitant]
     Dosage: 200 mg
     Route: 065
     Dates: start: 20090526
  8. VOGLIBOSE [Concomitant]
     Dosage: 0.6 mg
     Route: 065
     Dates: start: 20101106
  9. LANTUS [Concomitant]
     Dosage: 8 U
     Route: 065
     Dates: start: 20101106

REACTIONS (2)
  - Oesophagitis haemorrhagic [Recovered/Resolved]
  - Oesophageal ulcer [Recovered/Resolved]
